FAERS Safety Report 19263800 (Version 1)
Quarter: 2021Q2

REPORT INFORMATION
  Report Type: Spontaneous
  Country: US (occurrence: US)
  Receive Date: 20210514
  Receipt Date: 20210514
  Transmission Date: 20210717
  Serious: Yes (Other)
  Sender: FDA-Public Use
  Company Number: None

PATIENT
  Age: 58 Year
  Sex: Female
  Weight: 81.45 kg

DRUGS (4)
  1. MYCARDIS [Concomitant]
  2. METFORMIN [Concomitant]
     Active Substance: METFORMIN HYDROCHLORIDE
  3. MULTIVITAMIN CENTRUM FOR WOMEN [Concomitant]
  4. TRULICITY [Suspect]
     Active Substance: DULAGLUTIDE
     Indication: TYPE 2 DIABETES MELLITUS
     Dosage: ?          OTHER FREQUENCY:ONCE WEEKLY;?
     Route: 058
     Dates: start: 20201124, end: 20210504

REACTIONS (7)
  - Abdominal distension [None]
  - Vomiting [None]
  - Back pain [None]
  - Abdominal discomfort [None]
  - Abdominal pain [None]
  - Eructation [None]
  - Gastrointestinal pain [None]

NARRATIVE: CASE EVENT DATE: 20210507
